FAERS Safety Report 7138450-5 (Version None)
Quarter: 2010Q4

REPORT INFORMATION
  Report Type: 
  Country: None (occurrence: None)
  Receive Date: 20101206
  Receipt Date: 20101126
  Transmission Date: 20110411
  Serious: Yes (Hospitalization)
  Sender: FDA-Public Use
  Company Number: PHHO2010IT17919

PATIENT
  Sex: Male

DRUGS (6)
  1. BLINDED ALISKIREN ALI+TAB+CF [Suspect]
     Indication: CARDIAC FAILURE
     Dosage: CODE NOT BROKEN
     Route: 048
     Dates: start: 20100827, end: 20101022
  2. ENALAPRIL MALEATE [Suspect]
     Indication: CARDIAC FAILURE
     Dosage: CODE NOT BROKEN
     Route: 048
     Dates: start: 20100827, end: 20101022
  3. BLINDED NO TREATMENT RECEIVED NOMED [Suspect]
     Indication: CARDIAC FAILURE
     Dosage: CODE NOT BROKEN
     Route: 048
     Dates: start: 20100827, end: 20101022
  4. COMPARATOR ENALAPRIL [Suspect]
     Indication: CARDIAC FAILURE
     Dosage: 10 MG, QD
     Route: 048
     Dates: start: 20100626, end: 20100707
  5. COMPARATOR ENALAPRIL [Suspect]
     Dosage: 20 MG, QD
     Route: 048
     Dates: start: 20100707, end: 20100827
  6. ALISKIREN [Suspect]
     Indication: CARDIAC FAILURE
     Dosage: 150 MG, UNK
     Route: 048
     Dates: start: 20100730, end: 20100827

REACTIONS (2)
  - CARDIAC FAILURE [None]
  - DYSPNOEA [None]
